FAERS Safety Report 7690235-7 (Version None)
Quarter: 2011Q3

REPORT INFORMATION
  Report Type: 
  Country: None (occurrence: None)
  Receive Date: 20110818
  Receipt Date: 20110816
  Transmission Date: 20111222
  Serious: Yes (Other)
  Sender: FDA-Public Use
  Company Number: US-PFIZER INC-2011188570

PATIENT
  Sex: Male
  Weight: 91 kg

DRUGS (3)
  1. PRISTIQ [Suspect]
     Indication: ANXIETY
     Dosage: 50 MG, DAILY
     Route: 048
     Dates: start: 20110812, end: 20110816
  2. TYLENOL PM [Concomitant]
     Indication: SLEEP DISORDER
     Dosage: UNK, AS NEEDED
     Route: 048
  3. PRISTIQ [Suspect]
     Indication: DEPRESSION

REACTIONS (4)
  - PALPITATIONS [None]
  - HEART RATE INCREASED [None]
  - HYPERHIDROSIS [None]
  - ANXIETY [None]
